FAERS Safety Report 8343409-6 (Version None)
Quarter: 2012Q2

REPORT INFORMATION
  Report Type: 
  Country: None (occurrence: None)
  Receive Date: 20120508
  Receipt Date: 20100430
  Transmission Date: 20120825
  Serious: No
  Sender: FDA-Public Use
  Company Number: US-TEVA-2010002181

PATIENT
  Sex: Female
  Weight: 76.272 kg

DRUGS (7)
  1. DEXAMETHASONE [Concomitant]
     Indication: PREMEDICATION
  2. TREANDA [Suspect]
     Indication: NON-HODGKIN'S LYMPHOMA
     Route: 042
     Dates: start: 20100311
  3. KYTRIL [Concomitant]
     Indication: PREMEDICATION
  4. BENADRYL [Concomitant]
     Indication: PREMEDICATION
  5. ALLOPURINOL [Concomitant]
  6. ACETAMINOPHEN [Concomitant]
     Indication: PREMEDICATION
  7. FAMOTIDINE [Concomitant]
     Indication: PREMEDICATION

REACTIONS (2)
  - RASH ERYTHEMATOUS [None]
  - PYREXIA [None]
